FAERS Safety Report 8917471 (Version 1)
Quarter: 2012Q4

REPORT INFORMATION
  Report Type: 
  Country: FR (occurrence: FR)
  Receive Date: 20121120
  Receipt Date: 20121120
  Transmission Date: 20130627
  Serious: Yes (Hospitalization, Other)
  Sender: FDA-Public Use
  Company Number: FR-PFIZER INC-2012286245

PATIENT
  Age: 90 Year
  Sex: Female

DRUGS (13)
  1. ALDACTONE [Suspect]
     Dosage: 25 mg, 1x/day
     Route: 048
     Dates: end: 20120922
  2. PROFENID [Interacting]
     Indication: PAIN
     Dosage: 50 mg, 2x/day
     Route: 048
     Dates: start: 20120913, end: 20120922
  3. KARDEGIC [Interacting]
     Dosage: 160 mg, 1x/day
     Route: 048
     Dates: end: 20120922
  4. LASILIX [Interacting]
     Dosage: 40 mg, 2x/day
     Route: 048
     Dates: end: 20120922
  5. VOLTARENE [Interacting]
     Indication: PAIN
     Dosage: 2 DF, 1x/day
     Route: 061
     Dates: start: 20120727, end: 20120922
  6. CARDENSIEL [Concomitant]
     Dosage: 1.25 mg, 2x/day
     Dates: end: 20120922
  7. INEXIUM [Concomitant]
     Dosage: 40 mg, 1x/day
     Route: 048
     Dates: start: 20120219
  8. CORDARONE [Concomitant]
     Dosage: 1 DF, 1x/day, 5 days of 7
     Route: 048
  9. EFFEXOR [Concomitant]
     Dosage: 75 mg, 1x/day
     Route: 048
  10. STILNOX [Concomitant]
     Dosage: 10 mg, daily
     Route: 048
  11. CIFLOX [Concomitant]
     Dosage: 250 mg, 2x/day
     Route: 048
     Dates: end: 20120922
  12. PLAVIX [Concomitant]
     Dosage: 75 mg, 1x/day
     Route: 048
     Dates: end: 20120922
  13. LOVENOX [Concomitant]
     Indication: PERIPHERAL ARTERY BYPASS
     Dosage: 1 DF, 1x/day
     Route: 058
     Dates: start: 20120831, end: 20120922

REACTIONS (8)
  - Drug interaction [Recovering/Resolving]
  - Renal failure [Recovering/Resolving]
  - Syncope [Recovered/Resolved]
  - Melaena [Recovered/Resolved]
  - Abdominal pain [Recovered/Resolved]
  - Nausea [Recovered/Resolved]
  - Anaemia [Recovered/Resolved]
  - Hypotension [Recovered/Resolved]
